FAERS Safety Report 19176560 (Version 2)
Quarter: 2021Q2

REPORT INFORMATION
  Report Type: Report from Study
  Country: None (occurrence: CO)
  Receive Date: 20210423
  Receipt Date: 20210424
  Transmission Date: 20210717
  Serious: Yes (Death, Hospitalization, Other)
  Sender: FDA-Public Use
  Company Number: CO-ABBVIE-21K-036-3868506-00

PATIENT
  Age: 69 Year
  Sex: Male
  Weight: 65 kg

DRUGS (1)
  1. IMBRUVICA [Suspect]
     Active Substance: IBRUTINIB
     Indication: MANTLE CELL LYMPHOMA
     Route: 048
     Dates: start: 20210311, end: 20210409

REACTIONS (6)
  - Respiratory failure [Fatal]
  - Device related infection [Not Recovered/Not Resolved]
  - Haemoglobin decreased [Not Recovered/Not Resolved]
  - Haemoglobin increased [Not Recovered/Not Resolved]
  - Peripheral coldness [Not Recovered/Not Resolved]
  - Unresponsive to stimuli [Not Recovered/Not Resolved]

NARRATIVE: CASE EVENT DATE: 202103
